FAERS Safety Report 6265342-6 (Version None)
Quarter: 2009Q3

REPORT INFORMATION
  Report Type: 
  Country: None (occurrence: None)
  Receive Date: 20090713
  Receipt Date: 20090702
  Transmission Date: 20100115
  Serious: Yes (Hospitalization)
  Sender: FDA-Public Use
  Company Number: AR-AMGEN-US355063

PATIENT
  Sex: Female
  Weight: 67.5 kg

DRUGS (6)
  1. ENBREL [Suspect]
     Indication: RHEUMATOID ARTHRITIS
     Route: 058
     Dates: start: 20090108, end: 20090424
  2. INSULIN [Concomitant]
     Dosage: ^1 VIAL/15 MG/BY MIDDAY^
  3. INSULIN [Concomitant]
     Dosage: ^1 VIAL/10 MG/BY NIGHT^
  4. CORTICOSTEROID NOS [Concomitant]
  5. METHOTREXATE [Concomitant]
     Indication: RHEUMATOID ARTHRITIS
  6. SULFASALAZINE [Concomitant]
     Indication: RHEUMATOID ARTHRITIS

REACTIONS (2)
  - CELLULITIS [None]
  - HAEMATOMA [None]
